FAERS Safety Report 6668071-X (Version None)
Quarter: 2010Q2

REPORT INFORMATION
  Report Type: 
  Country: None (occurrence: None)
  Receive Date: 20100405
  Receipt Date: 20100326
  Transmission Date: 20101027
  Serious: Yes (Death)
  Sender: FDA-Public Use
  Company Number: JP-ABBOTT-10P-087-0633024-00

PATIENT
  Age: 73 Year
  Sex: Male
  Weight: 79.4 kg

DRUGS (10)
  1. LEUPROLIDE ACETATE [Suspect]
     Indication: PROSTATE CANCER STAGE III
     Route: 058
     Dates: start: 20060124
  2. LEUPLIN FOR INJECTION 3.75 MG [Suspect]
     Indication: PROSTATE CANCER STAGE III
     Dates: start: 20050721, end: 20051227
  3. CASODEX [Concomitant]
     Indication: PROSTATE CANCER STAGE III
     Route: 048
  4. MEVALOTIN [Concomitant]
     Indication: AORTIC ANEURYSM
     Route: 048
     Dates: start: 20071112, end: 20071209
  5. MEVALOTIN [Concomitant]
     Indication: HYPERLIPIDAEMIA
  6. NORVASC [Concomitant]
     Indication: HYPERTENSION
     Route: 048
     Dates: start: 20071112, end: 20071209
  7. MICARDIS [Concomitant]
     Indication: HYPERTENSION
     Route: 048
     Dates: start: 20071112, end: 20071209
  8. AMLODIPINE [Concomitant]
     Indication: HYPERTENSION
     Route: 048
     Dates: start: 20071211
  9. PARIET [Concomitant]
     Indication: GASTRIC ULCER
     Route: 048
     Dates: start: 20071204
  10. CYTOTEC [Concomitant]
     Indication: GASTRIC ULCER
     Route: 048
     Dates: start: 20071204

REACTIONS (1)
  - ACUTE MYELOID LEUKAEMIA [None]
